FAERS Safety Report 5066642-8 (Version None)
Quarter: 2006Q3

REPORT INFORMATION
  Report Type: 
  Country: None (occurrence: None)
  Receive Date: 20060719
  Receipt Date: 20060719
  Transmission Date: 20061208
  Serious: Yes (Hospitalization)
  Sender: FDA-Public Use
  Company Number: None

PATIENT
  Age: 70 Year
  Sex: Male
  Weight: 67.3 kg

DRUGS (1)
  1. REPAGLINIDE [Suspect]
     Indication: DIABETES MELLITUS

REACTIONS (7)
  - BLOOD GLUCOSE DECREASED [None]
  - DIPLOPIA [None]
  - DIZZINESS [None]
  - HYPERKALAEMIA [None]
  - RENAL FAILURE [None]
  - URINARY TRACT INFECTION [None]
  - VISION BLURRED [None]
